FAERS Safety Report 7533100-8 (Version None)
Quarter: 2011Q2

REPORT INFORMATION
  Report Type: 
  Country: None (occurrence: None)
  Receive Date: 20110608
  Receipt Date: 20110603
  Transmission Date: 20111010
  Serious: Yes (Hospitalization, Other)
  Sender: FDA-Public Use
  Company Number: US-CEPHALON-2011002826

PATIENT
  Age: 74 Year
  Sex: Female

DRUGS (4)
  1. TREANDA [Suspect]
     Indication: B-CELL LYMPHOMA
     Route: 042
     Dates: start: 20110517
  2. METHYLPREDNISOLONE [Concomitant]
     Dates: start: 20110518, end: 20110518
  3. RITUXAN [Concomitant]
     Indication: B-CELL LYMPHOMA
     Route: 042
     Dates: start: 20110516
  4. BENADRYL [Concomitant]
     Dates: start: 20110518, end: 20110518

REACTIONS (7)
  - DEHYDRATION [None]
  - MOVEMENT DISORDER [None]
  - DIARRHOEA [None]
  - ERYTHEMA [None]
  - THROAT TIGHTNESS [None]
  - PYREXIA [None]
  - EYE SWELLING [None]
